FAERS Safety Report 9782460 (Version 5)
Quarter: 2014Q1

REPORT INFORMATION
  Report Type: Report from Study
  Country: JP (occurrence: JP)
  Receive Date: 20131226
  Receipt Date: 20140327
  Transmission Date: 20141002
  Serious: Yes (Other)
  Sender: FDA-Public Use
  Company Number: JP-JNJFOC-20130606733

PATIENT
  Age: 72 Year
  Sex: Female
  Weight: 57 kg

DRUGS (17)
  1. SIMPONI [Suspect]
     Indication: RHEUMATOID ARTHRITIS
     Route: 058
     Dates: start: 20130117
  2. SIMPONI [Suspect]
     Indication: RHEUMATOID ARTHRITIS
     Route: 058
     Dates: start: 20121213
  3. SIMPONI [Suspect]
     Indication: RHEUMATOID ARTHRITIS
     Route: 058
     Dates: start: 20121115
  4. SIMPONI [Suspect]
     Indication: RHEUMATOID ARTHRITIS
     Route: 058
     Dates: start: 20121018
  5. SIMPONI [Suspect]
     Indication: RHEUMATOID ARTHRITIS
     Route: 058
     Dates: start: 20120920
  6. SIMPONI [Suspect]
     Indication: RHEUMATOID ARTHRITIS
     Route: 058
     Dates: start: 20120823
  7. SALAZOSULFAPYRIDINE [Concomitant]
     Indication: RHEUMATOID ARTHRITIS
  8. TACROLIMUS HYDRATE [Concomitant]
     Indication: RHEUMATOID ARTHRITIS
  9. PREDONINE [Concomitant]
     Indication: RHEUMATOID ARTHRITIS
     Route: 048
  10. CELECOX [Concomitant]
     Indication: RHEUMATOID ARTHRITIS
     Route: 048
  11. GLIMEPIRIDE [Concomitant]
     Indication: DIABETES MELLITUS
     Route: 048
  12. GLUCOBAY [Concomitant]
     Indication: DIABETES MELLITUS
     Route: 048
  13. LIPITOR [Concomitant]
     Indication: DYSLIPIDAEMIA
     Route: 048
  14. MUCOSTA [Concomitant]
     Indication: PROPHYLAXIS
     Route: 048
  15. DEPAS [Concomitant]
     Indication: ANXIETY
     Route: 048
  16. HALCION [Concomitant]
     Indication: INSOMNIA
     Route: 048
  17. BONALON [Concomitant]
     Indication: PROPHYLAXIS
     Route: 048

REACTIONS (2)
  - Enteritis infectious [Recovered/Resolved]
  - Nasopharyngitis [Recovered/Resolved]
